FAERS Safety Report 16203465 (Version 1)
Quarter: 2019Q2

REPORT INFORMATION
  Report Type: Report from Study
  Country: CO (occurrence: CO)
  Receive Date: 20190416
  Receipt Date: 20190416
  Transmission Date: 20190711
  Serious: Yes (Other)
  Sender: FDA-Public Use
  Company Number: CO-UCBSA-2019015801

PATIENT
  Age: 46 Year
  Sex: Female
  Weight: 49 kg

DRUGS (1)
  1. CERTOLIZUMAB PEGOL [Suspect]
     Active Substance: CERTOLIZUMAB PEGOL
     Indication: RHEUMATOID ARTHRITIS
     Dosage: 400 MG, EV 4 WEEKS
     Route: 058
     Dates: start: 20121029

REACTIONS (2)
  - Skin cancer [Recovered/Resolved]
  - Oral herpes [Recovering/Resolving]

NARRATIVE: CASE EVENT DATE: 20180101
